FAERS Safety Report 7035599-2 (Version None)
Quarter: 2010Q4

REPORT INFORMATION
  Report Type: 
  Country: None (occurrence: None)
  Receive Date: 20101008
  Receipt Date: 20101001
  Transmission Date: 20110411
  Serious: Yes (Disabling, Other)
  Sender: FDA-Public Use
  Company Number: AU-PFIZER INC-2010116305

PATIENT
  Age: 52 Year
  Sex: Female
  Weight: 61 kg

DRUGS (6)
  1. CELEBREX [Suspect]
     Indication: ARTHRALGIA
     Dosage: 300 MG, UNK
     Route: 048
     Dates: start: 19970101
  2. CELEBREX [Suspect]
     Indication: EPIDEMIC POLYARTHRITIS
  3. TEMAZE [Concomitant]
     Indication: INSOMNIA
     Dosage: UNK
     Route: 048
     Dates: start: 20000101
  4. PREMARIN [Concomitant]
     Indication: MENOPAUSE
     Dosage: 0.3 MG, UNK
     Route: 048
     Dates: start: 20060101
  5. NUROFEN PLUS [Concomitant]
     Indication: ARTHRALGIA
     Dosage: UNK
     Route: 048
     Dates: start: 20090101
  6. PANADOL [Concomitant]
     Indication: ARTHRALGIA
     Dosage: UNK
     Route: 048
     Dates: start: 20090101

REACTIONS (1)
  - ARRHYTHMIA [None]
